FAERS Safety Report 8947094 (Version 2)
Quarter: 2013Q1

REPORT INFORMATION
  Report Type: Spontaneous
  Country: DE (occurrence: CA)
  Receive Date: 20121205
  Receipt Date: 20130313
  Transmission Date: 20140127
  Serious: Yes (Life-Threatening, Hospitalization)
  Sender: FDA-Public Use
  Company Number: CA-FRI-1000040825

PATIENT
  Age: 67 Year
  Sex: Female
  Weight: 75 kg

DRUGS (10)
  1. ROFLUMILAST [Suspect]
     Dosage: 250 MCG
     Route: 048
     Dates: start: 20120611, end: 201206
  2. ROFLUMILAST [Suspect]
     Dosage: 500 MCG
     Route: 048
     Dates: start: 201206
  3. SPIRIVA [Concomitant]
     Dosage: 18 MCG
  4. SYMBICORT [Concomitant]
     Dosage: 400 MCG
  5. ALL OTHER THERAPEUTIC PRODUCTS [Concomitant]
  6. SALBUTAMOL [Concomitant]
  7. CICLESONIDE [Concomitant]
  8. LANSOPRAZOLE [Concomitant]
  9. DIAMOX [Concomitant]
  10. WARFARIN [Concomitant]

REACTIONS (3)
  - Infective exacerbation of chronic obstructive airways disease [Recovered/Resolved]
  - Emphysema [Unknown]
  - Weight decreased [Recovered/Resolved]
